FAERS Safety Report 4523089-8 (Version None)
Quarter: 2004Q4

REPORT INFORMATION
  Report Type: 
  Country: None (occurrence: None)
  Receive Date: 20041208
  Receipt Date: 20041130
  Transmission Date: 20050328
  Serious: Yes (Hospitalization)
  Sender: FDA-Public Use
  Company Number: 2004-12-0007

PATIENT
  Age: 39 Year
  Sex: Female
  Weight: 53 kg

DRUGS (6)
  1. TOPALGIC INJECTABLE SOLUTION (TRAMADOL HCL) [Suspect]
     Dates: end: 20040115
  2. AERIUS (DESLORATADINE) TABLETS  'LIKE LCARINEX' [Suspect]
     Indication: HYPERSENSITIVITY
     Dosage: 5 MG QD ORAL
     Route: 048
  3. EFFERALGAN CODEINE TABLETS [Suspect]
     Dosage: 2 TABS TID ORAL
     Route: 048
     Dates: end: 20041017
  4. DI-ANTALVIC CAPSULES [Suspect]
     Dosage: 2 CAPS QD ORAL
     Route: 048
  5. LYSANXIA TABLETS [Suspect]
     Indication: ANXIETY
     Dosage: 20 MG QD ORAL
     Route: 048
     Dates: end: 20041017
  6. LEXOMIL (BROMAZEPAM) TABLETS [Suspect]
     Indication: ANXIETY
     Dosage: 12 MG BID ORAL
     Route: 048
     Dates: end: 20041017

REACTIONS (1)
  - ECZEMA [None]
